FAERS Safety Report 7237209-8 (Version None)
Quarter: 2011Q1

REPORT INFORMATION
  Report Type: 
  Country: None (occurrence: None)
  Receive Date: 20110111
  Receipt Date: 20101227
  Transmission Date: 20110831
  Serious: Yes (Life-Threatening)
  Sender: FDA-Public Use
  Company Number: GRP10000115

PATIENT
  Age: 84 Year
  Sex: Female
  Weight: 40 kg

DRUGS (6)
  1. CRANOC (FLUVASTATIN SODIUM) [Suspect]
     Indication: ARTERIOSCLEROSIS CORONARY ARTERY
     Dosage: 80 MG, 1 /DAY, ORAL
     Route: 048
     Dates: start: 20020801, end: 20030501
  2. NOVODIGAL /00017701/ (DIGOXIN) [Concomitant]
  3. ACTONEL [Suspect]
     Indication: OSTEOPOROSIS
     Dosage: ONE DOSAGE FORM/DAY, ORAL
     Route: 048
     Dates: start: 20030401, end: 20030401
  4. ISDN AL (ISOSORBIDE DINITRATE) [Concomitant]
  5. CALCILESS (POTASSIUM PHOSPHATE MONOBASIC, SODIUM PHOSPHATE) [Concomitant]
  6. ASPIRIN [Concomitant]

REACTIONS (5)
  - ASTHENIA [None]
  - RHABDOMYOLYSIS [None]
  - MALAISE [None]
  - CARDIAC DISORDER [None]
  - BLOOD IRON DECREASED [None]
